FAERS Safety Report 5268608-1 (Version None)
Quarter: 2007Q1

REPORT INFORMATION
  Report Type: 
  Country: None (occurrence: None)
  Receive Date: 20070314
  Receipt Date: 20070228
  Transmission Date: 20070707
  Serious: Yes (Death, Hospitalization)
  Sender: FDA-Public Use
  Company Number: 2004IM001014

PATIENT
  Age: 48 Year
  Sex: Male
  Weight: 95.709 kg

DRUGS (9)
  1. INTERFERON GAMMA-1B [Suspect]
     Indication: IDIOPATHIC PULMONARY FIBROSIS
     Dosage: SEE IMAGE
     Route: 058
     Dates: start: 20040823, end: 20041208
  2. INTERFERON GAMMA-1B [Suspect]
     Indication: IDIOPATHIC PULMONARY FIBROSIS
     Dosage: SEE IMAGE
     Route: 058
     Dates: start: 20041210, end: 20041217
  3. PREVACID [Concomitant]
  4. ZOLOFT [Concomitant]
  5. VICODIN [Concomitant]
  6. XANAX [Concomitant]
  7. TRAMADOL HCL [Concomitant]
  8. LORATADINE [Concomitant]
  9. OXYGEN [Concomitant]

REACTIONS (13)
  - ACUTE RESPIRATORY FAILURE [None]
  - ALVEOLITIS [None]
  - ARTHRALGIA [None]
  - CARDIOMEGALY [None]
  - CHEST PAIN [None]
  - HEPATIC STEATOSIS [None]
  - HEPATOMEGALY [None]
  - HYPOTENSION [None]
  - INFLUENZA [None]
  - INTERSTITIAL LUNG DISEASE [None]
  - PNEUMONIA [None]
  - RENAL ARTERIOSCLEROSIS [None]
  - VENTRICULAR HYPERTROPHY [None]
